FAERS Safety Report 5290796-1 (Version None)
Quarter: 2007Q2

REPORT INFORMATION
  Report Type: 
  Country: None (occurrence: None)
  Receive Date: 20070409
  Receipt Date: 20070326
  Transmission Date: 20071010
  Serious: Yes (Disabling)
  Sender: FDA-Public Use
  Company Number: GR-PFIZER INC-2007024687

PATIENT
  Age: 87 Year
  Sex: Female

DRUGS (3)
  1. NEURONTIN [Suspect]
     Indication: PELVIC PAIN
  2. NEURONTIN [Suspect]
     Indication: ABDOMINAL PAIN
  3. SALOSPIR [Concomitant]

REACTIONS (2)
  - DYSSTASIA [None]
  - SOMNOLENCE [None]
